FAERS Safety Report 8908445 (Version 2)
Quarter: 2013Q2

REPORT INFORMATION
  Report Type: Spontaneous
  Country: US (occurrence: US)
  Receive Date: 20121114
  Receipt Date: 20130502
  Transmission Date: 20140414
  Serious: Yes (Other)
  Sender: FDA-Public Use
  Company Number: CHPA2012US023236

PATIENT
  Age: 5 Year
  Sex: Female

DRUGS (1)
  1. TRIAMINIC NIGHT TIME COLD + COUGH [Suspect]
     Indication: COUGH
     Dosage: 1 THIN STRIP EVERY NIGHT
     Route: 048
     Dates: start: 2009

REACTIONS (4)
  - Sinusitis [Recovered/Resolved]
  - Fatigue [Recovered/Resolved]
  - Incorrect drug administration duration [Unknown]
  - Prescribed overdose [Unknown]
